FAERS Safety Report 9065056 (Version 1)
Quarter: 2013Q1

REPORT INFORMATION
  Report Type: Spontaneous
  Country: US (occurrence: US)
  Receive Date: 20130206
  Receipt Date: 20130206
  Transmission Date: 20140127
  Serious: No
  Sender: FDA-Public Use
  Company Number: US-ASTRAZENECA-2013SE07243

PATIENT
  Age: 61 Year
  Sex: Female
  Weight: 79.8 kg

DRUGS (6)
  1. NEXIUM [Suspect]
     Indication: GASTROOESOPHAGEAL REFLUX DISEASE
     Route: 048
     Dates: end: 200803
  2. OMEPRAZOLE [Suspect]
     Indication: GASTROOESOPHAGEAL REFLUX DISEASE
     Route: 048
     Dates: start: 200803, end: 200806
  3. OMEPRAZOLE [Suspect]
     Indication: GASTROOESOPHAGEAL REFLUX DISEASE
     Dosage: OMEPRAZOLE OTC
     Route: 048
     Dates: start: 200806, end: 201211
  4. SYNTHROID [Concomitant]
     Indication: THYROID DISORDER
  5. VALTREX [Concomitant]
     Indication: VIITH NERVE PARALYSIS
  6. VITAMINS [Concomitant]

REACTIONS (4)
  - Eye disorder [Unknown]
  - VIIth nerve paralysis [Unknown]
  - Intentional drug misuse [Unknown]
  - Drug dose omission [Unknown]
